FAERS Safety Report 7077555-4 (Version None)
Quarter: 2010Q4

REPORT INFORMATION
  Report Type: 
  Country: None (occurrence: None)
  Receive Date: 20101101
  Receipt Date: 20101020
  Transmission Date: 20110411
  Serious: Yes (Life-Threatening)
  Sender: FDA-Public Use
  Company Number: JP-PFIZER INC-2010132850

PATIENT
  Age: 79 Year
  Sex: Male

DRUGS (9)
  1. LYRICA [Suspect]
     Indication: POST HERPETIC NEURALGIA
     Dosage: 50 MG/DAY
     Route: 048
     Dates: start: 20100913
  2. LYRICA [Suspect]
     Dosage: 200 MG/DAY
     Route: 048
     Dates: end: 20101012
  3. MAGNESIUM OXIDE [Concomitant]
  4. ZANTAC [Concomitant]
  5. DEPROMEL [Concomitant]
  6. NIVADIL [Concomitant]
  7. URSO 250 [Concomitant]
  8. FRANDOL [Concomitant]
  9. 8-HOUR BAYER [Concomitant]

REACTIONS (1)
  - CEREBRAL HAEMORRHAGE [None]
